FAERS Safety Report 15968196 (Version 1)
Quarter: 2019Q1

REPORT INFORMATION
  Report Type: Spontaneous
  Country: IT (occurrence: IT)
  Receive Date: 20190215
  Receipt Date: 20190215
  Transmission Date: 20190418
  Serious: Yes (Other)
  Sender: FDA-Public Use
  Company Number: IT-JNJFOC-20190212361

PATIENT
  Age: 22 Year
  Sex: Female
  Weight: 60 kg

DRUGS (4)
  1. RISPERDAL [Suspect]
     Active Substance: RISPERIDONE
     Indication: PRODUCT USED FOR UNKNOWN INDICATION
     Route: 048
     Dates: start: 20190209, end: 20190209
  2. CARBOLITHIUM [Suspect]
     Active Substance: LITHIUM CARBONATE
     Indication: PRODUCT USED FOR UNKNOWN INDICATION
     Route: 048
     Dates: start: 20190209, end: 20190209
  3. ADEMETIONINE [Suspect]
     Active Substance: ADEMETIONINE
     Indication: PRODUCT USED FOR UNKNOWN INDICATION
     Route: 048
     Dates: start: 20190209, end: 20190209
  4. ROBILAS [Suspect]
     Active Substance: BILASTINE
     Indication: PRODUCT USED FOR UNKNOWN INDICATION
     Route: 048
     Dates: start: 20190209, end: 20190209

REACTIONS (3)
  - Intentional self-injury [Unknown]
  - Intentional product misuse [Unknown]
  - Vomiting [Unknown]

NARRATIVE: CASE EVENT DATE: 20190209
